FAERS Safety Report 6049530-X (Version None)
Quarter: 2009Q1

REPORT INFORMATION
  Report Type: 
  Country: None (occurrence: None)
  Receive Date: 20090121
  Receipt Date: 20090109
  Transmission Date: 20090719
  Serious: Yes (Death, Life-Threatening)
  Sender: FDA-Public Use
  Company Number: 08P-261-0494442-00

PATIENT
  Age: 7 Month
  Sex: Female

DRUGS (7)
  1. SYNAGIS [Suspect]
     Indication: BRONCHOPULMONARY DYSPLASIA
     Dosage: 0.48 ML, 1  IN 1 M), INTRAMUSCULAR
     Route: 030
     Dates: start: 20081117, end: 20081117
  2. FUROSRMIDE (FUROSEMIDE) [Concomitant]
  3. SILDENAFIL CITRATE [Concomitant]
  4. AZITHROMYCIN [Concomitant]
  5. SPIRONOLACTONE (SPIRONOLAC1HE) [Concomitant]
  6. VITOL (COLECALCIFEROL RETINOL) [Concomitant]
  7. CALCITRIOL [Concomitant]

REACTIONS (3)
  - ANGIOPATHY [None]
  - BRADYCARDIA [None]
  - CARDIAC FAILURE ACUTE [None]
